FAERS Safety Report 20579703 (Version 9)
Quarter: 2022Q4

REPORT INFORMATION
  Report Type: Spontaneous
  Country: US (occurrence: US)
  Receive Date: 20220310
  Receipt Date: 20221101
  Transmission Date: 20230113
  Serious: Yes (Other)
  Sender: FDA-Public Use
  Company Number: US-PFIZER INC-2021242981

PATIENT
  Age: 81 Year
  Sex: Male

DRUGS (8)
  1. RAPAMUNE [Suspect]
     Active Substance: SIROLIMUS
     Indication: Liver transplant
     Dosage: 2.5 MG, DAILY (TAKE 1 TAB DAILY - TOTAL 2.5MG)
     Route: 048
  2. RAPAMUNE [Suspect]
     Active Substance: SIROLIMUS
     Dosage: 4 TABLETS (4 MG TOTAL), DAILY
     Route: 048
     Dates: start: 20210506, end: 20210804
  3. RAPAMUNE [Suspect]
     Active Substance: SIROLIMUS
     Dosage: 2.5 MG, DAILY (TAKE 5 -0.5MG TABLETS)
     Route: 048
  4. RAPAMUNE [Suspect]
     Active Substance: SIROLIMUS
     Dosage: 3 MG, DAILY (TAKE 6-0.5MG TABLETS)
     Route: 048
  5. RAPAMUNE [Suspect]
     Active Substance: SIROLIMUS
     Dosage: 3 MG, DAILY (TAKE 6-0.5MG TABLETS; TOTAL DOSE 2.5MG DAILY)
     Route: 048
  6. RAPAMUNE [Suspect]
     Active Substance: SIROLIMUS
     Dosage: 0.5 MG, DAILY, (0.5MG 30-DAY SUPPLY TAKE 6 TAB BY MOUTH)
     Route: 048
  7. RAPAMUNE [Suspect]
     Active Substance: SIROLIMUS
     Dosage: RAPAMUNE 0.5MG - TAKE 6 TABLETS ( 3MG TOTAL) BY MOUTH DAILY
     Route: 048
  8. RAPAMUNE [Suspect]
     Active Substance: SIROLIMUS
     Dosage: 3.5 MG, DAILY (TAKE 7 TABLETS (3.5 MG TOTAL) BY MOUTH DAILY WITH BREAKFAST)
     Route: 048

REACTIONS (5)
  - Illness [Unknown]
  - Cardiac disorder [Unknown]
  - Off label use [Unknown]
  - Dose calculation error [Unknown]
  - Product dose omission issue [Unknown]
